FAERS Safety Report 20507329 (Version 2)
Quarter: 2022Q3

REPORT INFORMATION
  Report Type: Spontaneous
  Country: US (occurrence: US)
  Receive Date: 20220223
  Receipt Date: 20220706
  Transmission Date: 20221027
  Serious: Yes (Other)
  Sender: FDA-Public Use
  Company Number: US-PFIZER INC-202200255602

PATIENT
  Age: 65 Year
  Sex: Male

DRUGS (1)
  1. DEPO-TESTOSTERONE [Suspect]
     Active Substance: TESTOSTERONE CYPIONATE
     Indication: Pituitary tumour removal
     Dosage: 200 MG/ML (2ML, EVERY 2 WEEKS)
     Route: 030
     Dates: start: 200108, end: 202201

REACTIONS (1)
  - Lethargy [Unknown]
